FAERS Safety Report 15993871 (Version 2)
Quarter: 2019Q1

REPORT INFORMATION
  Report Type: Spontaneous
  Country: US (occurrence: US)
  Receive Date: 20190222
  Receipt Date: 20190319
  Transmission Date: 20190418
  Serious: Yes (Hospitalization, Other)
  Sender: FDA-Public Use
  Company Number: US-SA-2019SA048953

PATIENT
  Age: 49 Year

DRUGS (1)
  1. AUBAGIO [Suspect]
     Active Substance: TERIFLUNOMIDE
     Dosage: 14 MG, UNK
     Route: 048

REACTIONS (5)
  - Ocular icterus [Not Recovered/Not Resolved]
  - Gallbladder disorder [Unknown]
  - Jaundice [Not Recovered/Not Resolved]
  - Hepatic enzyme abnormal [Unknown]
  - Liver disorder [Unknown]
